FAERS Safety Report 10687484 (Version 2)
Quarter: 2015Q1

REPORT INFORMATION
  Report Type: Spontaneous
  Country: US (occurrence: US)
  Receive Date: 20150102
  Receipt Date: 20150326
  Transmission Date: 20150720
  Serious: Yes (Other)
  Sender: FDA-Public Use
  Company Number: US-BAYER-2014-191275

PATIENT
  Age: 28 Year
  Sex: Female

DRUGS (1)
  1. MIRENA [Suspect]
     Active Substance: LEVONORGESTREL
     Indication: CONTRACEPTION
     Dosage: 20 MCG/24HR, CONT
     Route: 015
     Dates: start: 20020703, end: 20080718

REACTIONS (8)
  - Device issue [None]
  - Device misuse [None]
  - Pain [None]
  - Emotional distress [None]
  - Medical device discomfort [None]
  - Device dislocation [None]
  - Injury [None]
  - Anxiety [None]

NARRATIVE: CASE EVENT DATE: 2006
